FAERS Safety Report 21810314 (Version 1)
Quarter: 2023Q1

REPORT INFORMATION
  Report Type: Spontaneous
  Country: US (occurrence: None)
  Receive Date: 20230101
  Receipt Date: 20230101
  Transmission Date: 20230417
  Serious: Yes (Other)
  Sender: FDA-Public Use
  Company Number: None

PATIENT
  Age: 50 Year
  Sex: Female
  Weight: 72 kg

DRUGS (4)
  1. HERBALS\MITRAGYNINE [Suspect]
     Active Substance: HERBALS\MITRAGYNINE
     Indication: Anxiety
  2. HERBALS\MITRAGYNINE [Suspect]
     Active Substance: HERBALS\MITRAGYNINE
     Indication: Disturbance in attention
  3. UNSPECIFIED INGREDIENT [Concomitant]
     Active Substance: UNSPECIFIED INGREDIENT
  4. one-a-day-vitamins [Concomitant]

REACTIONS (11)
  - Malaise [None]
  - Vomiting projectile [None]
  - Dizziness [None]
  - Movement disorder [None]
  - Product odour abnormal [None]
  - Retching [None]
  - Impaired work ability [None]
  - Motion sickness [None]
  - Product taste abnormal [None]
  - Nervousness [None]
  - Product complaint [None]

NARRATIVE: CASE EVENT DATE: 20220830
